FAERS Safety Report 5224018-4 (Version None)
Quarter: 2007Q1

REPORT INFORMATION
  Report Type: 
  Country: None (occurrence: None)
  Receive Date: 20070130
  Receipt Date: 20070125
  Transmission Date: 20070707
  Serious: Yes (Hospitalization, Other)
  Sender: FDA-Public Use
  Company Number: 2007PK00139

PATIENT
  Age: 16397 Day
  Sex: Female
  Weight: 85 kg

DRUGS (3)
  1. ARIMIDEX [Suspect]
     Indication: BREAST CANCER
     Route: 048
     Dates: start: 20050222
  2. ZOLADEX [Suspect]
     Indication: BREAST CANCER
     Route: 058
     Dates: start: 20050223
  3. ZOLEDRONAT [Suspect]
     Indication: BREAST CANCER
     Route: 042
     Dates: start: 20050302

REACTIONS (2)
  - CARPAL TUNNEL SYNDROME [None]
  - TRIGGER FINGER [None]
